FAERS Safety Report 5146362-1 (Version None)
Quarter: 2006Q4

REPORT INFORMATION
  Report Type: 
  Country: None (occurrence: None)
  Receive Date: 20061102
  Receipt Date: 20060628
  Transmission Date: 20070319
  Serious: Yes (Other)
  Sender: FDA-Public Use
  Company Number: 2006097155

PATIENT
  Age: 58 Year
  Sex: Male
  Weight: 102.0593 kg

DRUGS (3)
  1. BEXTRA [Suspect]
     Indication: OSTEOARTHRITIS
     Dosage: 10 MG (10 MG, 1 IN 1 D), ORAL
     Route: 048
     Dates: start: 20050104, end: 20050501
  2. CELEBREX [Concomitant]
  3. LOTREL [Concomitant]

REACTIONS (4)
  - CYST [None]
  - FOLLICULITIS [None]
  - POST INFLAMMATORY PIGMENTATION CHANGE [None]
  - STEVENS-JOHNSON SYNDROME [None]
